FAERS Safety Report 5315570-9 (Version None)
Quarter: 2007Q2

REPORT INFORMATION
  Report Type: 
  Country: None (occurrence: None)
  Receive Date: 20070430
  Receipt Date: 20070430
  Transmission Date: 20071010
  Serious: Yes (Hospitalization)
  Sender: FDA-Public Use
  Company Number: None

PATIENT
  Sex: Male
  Weight: 77 kg

DRUGS (14)
  1. IRINOTECAN HCL [Suspect]
     Indication: OESOPHAGEAL CANCER METASTATIC
     Dosage: 50 MG   IV D1, D8 / 21 DAY CYCLE
     Route: 042
     Dates: start: 20070228, end: 20070417
  2. CISPLATIN [Suspect]
     Indication: OESOPHAGEAL CANCER METASTATIC
     Dosage: 25MG  IV D1, D8 / 21 DAY CYCLE
     Route: 042
     Dates: start: 20070228, end: 20070417
  3. DOCETAXEL (30MG/M2) D1, D8/ 21 D CYCLE [Suspect]
     Indication: OESOPHAGEAL CANCER METASTATIC
     Dosage: 30MG   IV D1, D8 / 21 DAY CYCLE
     Route: 042
     Dates: start: 20070228, end: 20070417
  4. BEVACIZUMAB (25MG/M2) D1, D8/ 21 D CYCLE [Suspect]
     Indication: OESOPHAGEAL CANCER METASTATIC
     Dosage: 10MG   IV
     Route: 042
     Dates: start: 20070228, end: 20070410
  5. ASPIRIN [Concomitant]
  6. ATIVAN [Concomitant]
  7. COMPAZINE [Concomitant]
  8. DECADRON [Concomitant]
  9. FAMVIR [Concomitant]
  10. LIPITOR [Concomitant]
  11. MAALOX FAST BLOCKER [Concomitant]
  12. PROTONIX [Concomitant]
  13. ZOFRAN [Concomitant]
  14. PERIDEX [Concomitant]

REACTIONS (3)
  - FEEDING TUBE COMPLICATION [None]
  - SURGICAL PROCEDURE REPEATED [None]
  - WOUND SECRETION [None]
